FAERS Safety Report 7227368-5 (Version None)
Quarter: 2011Q1

REPORT INFORMATION
  Report Type: 
  Country: None (occurrence: None)
  Receive Date: 20110105
  Receipt Date: 20101227
  Transmission Date: 20110831
  Serious: Yes (Other)
  Sender: FDA-Public Use
  Company Number: 2010SP064479

PATIENT
  Age: 21 Year
  Sex: Female

DRUGS (6)
  1. RAMNOS (LACTOBACILLUS RHAMNOSUS) [Suspect]
     Indication: PRODUCT USED FOR UNKNOWN INDICATION
     Dates: start: 20101213, end: 20101216
  2. MUCOSTA (REBAMIPIDE) [Suspect]
     Indication: PRODUCT USED FOR UNKNOWN INDICATION
     Dates: start: 20101213, end: 20101216
  3. DESOGESTREL AND ETHINYL ESTRADIOL [Suspect]
     Indication: CONTRACEPTION
     Dosage: QD,
  4. DESOGESTREL AND ETHINYL ESTRADIOL [Suspect]
     Indication: MENSTRUATION DELAYED
     Dosage: QD,
  5. ALBIS (ALBIS) [Suspect]
     Indication: PRODUCT USED FOR UNKNOWN INDICATION
     Dates: start: 20101213, end: 20101216
  6. ALGIRON (CIMETROPIUM BROMIDE) [Suspect]
     Indication: PRODUCT USED FOR UNKNOWN INDICATION
     Dosage: 50 MG;QD;
     Dates: start: 20101213, end: 20101216

REACTIONS (5)
  - MENSTRUATION DELAYED [None]
  - VOMITING [None]
  - DIARRHOEA [None]
  - DRUG INTERACTION [None]
  - ENTERITIS [None]
